FAERS Safety Report 6820735-0 (Version None)
Quarter: 2010Q3

REPORT INFORMATION
  Report Type: 
  Country: None (occurrence: None)
  Receive Date: 20100707
  Receipt Date: 20051129
  Transmission Date: 20110219
  Serious: No
  Sender: FDA-Public Use
  Company Number: US-PFIZER INC-2007058364

PATIENT
  Age: 15 Year
  Sex: Male

DRUGS (3)
  1. ZOLOFT [Suspect]
     Indication: ANXIETY
  2. ADDERALL 10 [Concomitant]
     Indication: DISTURBANCE IN ATTENTION
  3. FOCALIN [Concomitant]
     Indication: DISTURBANCE IN ATTENTION

REACTIONS (2)
  - DISTURBANCE IN ATTENTION [None]
  - SOMNOLENCE [None]
